FAERS Safety Report 7011710-4 (Version None)
Quarter: 2010Q3

REPORT INFORMATION
  Report Type: 
  Country: None (occurrence: None)
  Receive Date: 20100923
  Receipt Date: 20090317
  Transmission Date: 20110219
  Serious: No
  Sender: FDA-Public Use
  Company Number: US-WYE-H08636509

PATIENT
  Sex: Female

DRUGS (1)
  1. PREMARIN [Suspect]
     Indication: PRODUCT USED FOR UNKNOWN INDICATION
     Dosage: EVERY OTHER DAY AT BEDTIME
     Dates: start: 20090309

REACTIONS (5)
  - APPLICATION SITE PAIN [None]
  - APPLICATION SITE PRURITUS [None]
  - BLISTER [None]
  - HYPERSENSITIVITY [None]
  - URTICARIA [None]
